FAERS Safety Report 13353741 (Version 1)
Quarter: 2017Q1

REPORT INFORMATION
  Report Type: Spontaneous
  Country: GB (occurrence: GB)
  Receive Date: 20170321
  Receipt Date: 20170321
  Transmission Date: 20170429
  Serious: Yes (Other)
  Sender: FDA-Public Use
  Company Number: GB-ACCORD-049193

PATIENT
  Age: 61 Year
  Sex: Female
  Weight: 54 kg

DRUGS (4)
  1. NITROFURANTOIN/NITROFURANTOIN SODIUM [Concomitant]
     Indication: PROPHYLAXIS URINARY TRACT INFECTION
     Dosage: AT NIGHT
     Dates: start: 20170104
  2. MIRABEGRON [Concomitant]
     Active Substance: MIRABEGRON
     Indication: BLADDER DISORDER
     Dosage: TAKE ONE DAILY FOR BLADDER SYMPTOMS
     Dates: start: 20170222
  3. OXYBUTYNIN/OXYBUTYNIN HYDROCHLORIDE [Suspect]
     Active Substance: OXYBUTYNIN
     Indication: HYPERTONIC BLADDER
     Dosage: FIRST RECEIVED 2.5 MG ONCE DAILY AT NIGHT FROM 31-JAN-2017 UP TO FEB-2017 WHICH WAS TOLERATED
     Dates: start: 201702
  4. ENALAPRIL [Concomitant]
     Active Substance: ENALAPRIL
     Dates: start: 20161110

REACTIONS (3)
  - Cognitive disorder [Recovered/Resolved]
  - Dissociation [Recovered/Resolved]
  - Mood altered [Recovered/Resolved]

NARRATIVE: CASE EVENT DATE: 20170223
